FAERS Safety Report 10818605 (Version 1)
Quarter: 2015Q1

REPORT INFORMATION
  Report Type: Spontaneous
  Country: BR (occurrence: BR)
  Receive Date: 20150218
  Receipt Date: 20150218
  Transmission Date: 20150721
  Serious: Yes (Other)
  Sender: FDA-Public Use
  Company Number: ALCN2015BR001157

PATIENT
  Age: 53 Year
  Sex: Male
  Weight: 94 kg

DRUGS (3)
  1. CILODEX [Suspect]
     Active Substance: CIPROFLOXACIN\DEXAMETHASONE
     Indication: BLEPHARITIS
     Dosage: 1 GTT, BID
     Route: 047
     Dates: start: 20150206, end: 20150207
  2. AMLODIPINA//AMLODIPINE [Concomitant]
     Indication: HYPERTENSION
     Dosage: 2 TABLETS, QD
     Route: 048
  3. ENALAPRIL [Concomitant]
     Active Substance: ENALAPRIL
     Indication: HYPERTENSION
     Dosage: 2 TABLETS, QD
     Route: 048

REACTIONS (2)
  - Hypoaesthesia oral [Not Recovered/Not Resolved]
  - VIIth nerve paralysis [Not Recovered/Not Resolved]

NARRATIVE: CASE EVENT DATE: 20150207
